FAERS Safety Report 18157690 (Version 1)
Quarter: 2020Q3

REPORT INFORMATION
  Report Type: Spontaneous
  Country: BR (occurrence: BR)
  Receive Date: 20200817
  Receipt Date: 20200817
  Transmission Date: 20201103
  Serious: Yes (Other)
  Sender: FDA-Public Use
  Company Number: BR-TORRENT-00005428

PATIENT
  Age: 58 Year
  Sex: Female
  Weight: 75 kg

DRUGS (3)
  1. RESPIDON [Suspect]
     Active Substance: RISPERIDONE
     Indication: PSYCHOTIC DISORDER
     Dosage: ONE TABLET AT NIGHT
     Route: 048
     Dates: start: 2004, end: 202005
  2. DEPAKOTE [Concomitant]
     Active Substance: DIVALPROEX SODIUM
     Indication: BIPOLAR DISORDER
     Dosage: 2 TAB. IN THE MORNING AND 2 TAB. AT NIGHT
     Route: 048
     Dates: start: 2008
  3. RISPERIDONE. [Suspect]
     Active Substance: RISPERIDONE
     Indication: PSYCHOTIC DISORDER
     Dosage: APPROXIMATELY 3 MONTHS AGO
     Dates: start: 202005

REACTIONS (10)
  - Nausea [Not Recovered/Not Resolved]
  - Hypophagia [Unknown]
  - Product availability issue [Unknown]
  - Hypersensitivity [Unknown]
  - Abdominal distension [Not Recovered/Not Resolved]
  - Diarrhoea [Recovering/Resolving]
  - Therapy change [Unknown]
  - Erythema [Unknown]
  - Weight decreased [Unknown]
  - Abdominal pain [Recovering/Resolving]

NARRATIVE: CASE EVENT DATE: 2020
